FAERS Safety Report 19793358 (Version 1)
Quarter: 2021Q3

REPORT INFORMATION
  Report Type: Spontaneous
  Country: GB (occurrence: GB)
  Receive Date: 20210906
  Receipt Date: 20210906
  Transmission Date: 20211014
  Serious: Yes (Disabling, Other)
  Sender: FDA-Public Use
  Company Number: GB-BAUSCH-BL-2021-029932

PATIENT
  Age: 18 Year
  Sex: Female
  Weight: 53.97 kg

DRUGS (2)
  1. NEOMYCIN. [Suspect]
     Active Substance: NEOMYCIN
     Indication: ABDOMINAL DISTENSION
     Route: 048
     Dates: start: 20210723, end: 20210729
  2. TARGAXAN 550 MG FILM?COATED TABLETS [Suspect]
     Active Substance: RIFAXIMIN
     Indication: ABDOMINAL DISTENSION
     Route: 048
     Dates: start: 20210724, end: 20210730

REACTIONS (5)
  - Diarrhoea [Recovered/Resolved with Sequelae]
  - Muscle spasms [Recovered/Resolved with Sequelae]
  - Intentional product use issue [Recovered/Resolved]
  - Feeling hot [Unknown]
  - Nausea [Recovered/Resolved with Sequelae]

NARRATIVE: CASE EVENT DATE: 20210726
